FAERS Safety Report 8835541 (Version 1)
Quarter: 2012Q4

REPORT INFORMATION
  Report Type: Report from Study
  Country: US (occurrence: US)
  Receive Date: 20121011
  Receipt Date: 20121011
  Transmission Date: 20130627
  Serious: Yes (Hospitalization, Other)
  Sender: FDA-Public Use
  Company Number: US-ABBOTT-12P-163-0990742-00

PATIENT
  Age: 48 None
  Sex: Female
  Weight: 60.84 kg

DRUGS (11)
  1. HUMIRA PRE-FILLED SYRINGE [Suspect]
     Indication: FIBROMYALGIA
     Dates: start: 2007
  2. HUMIRA PRE-FILLED SYRINGE [Suspect]
     Dosage: Loading dose
     Dates: start: 20120922
  3. HUMIRA PEN [Suspect]
     Indication: FIBROMYALGIA
  4. PREDNISONE [Suspect]
     Indication: PRODUCT USED FOR UNKNOWN INDICATION
     Dosage: PATIENT TOOK 20MG IN AM AND 40 AT NIGHT, PRESCRIBED DOSE: 40MG DAILY
  5. NITROGLYCERIN [Suspect]
     Indication: COLITIS ULCERATIVE
  6. ULTRAM [Concomitant]
     Indication: PAIN
     Dosage: 25-50mg depending on the pain
  7. NORCO [Concomitant]
     Indication: PRODUCT USED FOR UNKNOWN INDICATION
  8. AMBIEN [Concomitant]
     Indication: PRODUCT USED FOR UNKNOWN INDICATION
  9. COLAZAL [Concomitant]
     Indication: PRODUCT USED FOR UNKNOWN INDICATION
  10. FIORICET [Concomitant]
     Indication: HEADACHE
     Dosage: 325mg
  11. ANTI-MALARIA DRUG [Concomitant]
     Indication: PRODUCT USED FOR UNKNOWN INDICATION

REACTIONS (29)
  - Rotator cuff syndrome [Recovered/Resolved]
  - Pancreatitis [Not Recovered/Not Resolved]
  - Injection site pain [Unknown]
  - Headache [Recovering/Resolving]
  - Impaired healing [Unknown]
  - Keloid scar [Unknown]
  - Pruritus [Unknown]
  - Inflammation [Unknown]
  - Diarrhoea [Unknown]
  - Overdose [Unknown]
  - Pain [Unknown]
  - Back pain [Unknown]
  - Oedema peripheral [Unknown]
  - Gait disturbance [Unknown]
  - Colitis ulcerative [Unknown]
  - Abdominal pain upper [Not Recovered/Not Resolved]
  - Anorectal discomfort [Not Recovered/Not Resolved]
  - Proctalgia [Unknown]
  - Injection site haemorrhage [Unknown]
  - White blood cell count increased [Unknown]
  - Migraine [Not Recovered/Not Resolved]
  - Nausea [Recovered/Resolved]
  - Headache [Not Recovered/Not Resolved]
  - Vision blurred [Unknown]
  - Visual impairment [Unknown]
  - Oropharyngeal pain [Recovered/Resolved]
  - Off label use [Not Recovered/Not Resolved]
  - Haematochezia [Recovering/Resolving]
  - Mucous stools [Recovering/Resolving]
